FAERS Safety Report 22046999 (Version 2)
Quarter: 2023Q1

REPORT INFORMATION
  Report Type: Report from Study
  Country: US (occurrence: US)
  Receive Date: 20230301
  Receipt Date: 20230303
  Transmission Date: 20230417
  Serious: Yes (Hospitalization)
  Sender: FDA-Public Use
  Company Number: US-ABBVIE-4322382

PATIENT
  Age: 76 Year
  Sex: Male

DRUGS (1)
  1. HUMIRA [Suspect]
     Active Substance: ADALIMUMAB
     Indication: Rheumatoid arthritis
     Dosage: DRUG STARTED 2 WEEKS BEFORE ACCIDENT?CITRATE FREE
     Route: 058
     Dates: start: 202212

REACTIONS (1)
  - Accident [Unknown]

NARRATIVE: CASE EVENT DATE: 20221221
